FAERS Safety Report 5079525-4 (Version None)
Quarter: 2006Q3

REPORT INFORMATION
  Report Type: 
  Country: None (occurrence: None)
  Receive Date: 20060814
  Receipt Date: 20060118
  Transmission Date: 20061208
  Serious: No
  Sender: FDA-Public Use
  Company Number: US-BRISTOL-MYERS SQUIBB COMPANY-13251657

PATIENT
  Age: 84 Year
  Sex: Female
  Weight: 77 kg

DRUGS (4)
  1. GLUCOVANCE [Suspect]
     Indication: DIABETES MELLITUS
     Dosage: DOSAGE FORM = 5 MG/500 MG
     Route: 048
  2. MONOPRIL [Concomitant]
  3. PRAVACHOL [Concomitant]
  4. FUROSEMIDE [Concomitant]

REACTIONS (2)
  - DIARRHOEA [None]
  - WEIGHT DECREASED [None]
